FAERS Safety Report 8011907-0 (Version None)
Quarter: 2011Q4

REPORT INFORMATION
  Report Type: 
  Country: None (occurrence: None)
  Receive Date: 20111228
  Receipt Date: 20111221
  Transmission Date: 20120403
  Serious: Yes (Hospitalization)
  Sender: FDA-Public Use
  Company Number: US-GLAXOSMITHKLINE-A0835769A

PATIENT
  Age: 71 Year
  Sex: Male
  Weight: 74.5 kg

DRUGS (1)
  1. AVANDIA [Suspect]
     Indication: TYPE 2 DIABETES MELLITUS
     Dosage: 8MG PER DAY
     Route: 048
     Dates: start: 20020927, end: 20041004

REACTIONS (3)
  - AMNESIA [None]
  - ASTHENIA [None]
  - CEREBROVASCULAR ACCIDENT [None]
